FAERS Safety Report 12880356 (Version 1)
Quarter: 2016Q4

REPORT INFORMATION
  Report Type: Spontaneous
  Country: US (occurrence: US)
  Receive Date: 20161025
  Receipt Date: 20161025
  Transmission Date: 20170207
  Serious: No
  Sender: FDA-Public Use
  Company Number: US-PFIZER INC-2016492466

PATIENT
  Sex: Female

DRUGS (2)
  1. NOREPINEPHRINE BITARTRATE. [Suspect]
     Active Substance: NOREPINEPHRINE BITARTRATE
     Dosage: UNK
  2. SEROTONIN [Suspect]
     Active Substance: SEROTONIN
     Dosage: UNK

REACTIONS (3)
  - Hormone level abnormal [Unknown]
  - Anxiety [Unknown]
  - Panic attack [Unknown]
